FAERS Safety Report 24843131 (Version 1)
Quarter: 2025Q1

REPORT INFORMATION
  Report Type: Spontaneous
  Country: FR (occurrence: FR)
  Receive Date: 20250115
  Receipt Date: 20250115
  Transmission Date: 20250408
  Serious: Yes (Hospitalization)
  Sender: CHEPLAPHARM
  Company Number: None

PATIENT
  Age: 27 Year
  Sex: Male
  Weight: 66 kg

DRUGS (14)
  1. VALGANCICLOVIR [Suspect]
     Active Substance: VALGANCICLOVIR
     Indication: Antiviral prophylaxis
     Dosage: 450 MG EVERY 1 DAY; 1 TABLET MORNING?DAILY DOSE: 450 MILLIGRAM
     Route: 048
     Dates: start: 202311, end: 20241202
  2. PREDNISONE [Suspect]
     Active Substance: PREDNISONE
  3. CELLCEPT [Suspect]
     Active Substance: MYCOPHENOLATE MOFETIL
     Indication: Renal transplant
     Dosage: 2 TABLETS AT 8 A.M. AND 8 P.M.; 2 GRAMS DAILY?DAILY DOSE: 2 GRAM
     Route: 048
     Dates: start: 20231117, end: 20241202
  4. BACTRIM [Suspect]
     Active Substance: SULFAMETHOXAZOLE\TRIMETHOPRIM
     Indication: Opportunistic infection prophylaxis
     Dosage: 3 DOSAGE FORM EVERY 1 WEEK
     Route: 048
     Dates: start: 202311, end: 20241202
  5. BACTRIM [Suspect]
     Active Substance: SULFAMETHOXAZOLE\TRIMETHOPRIM
     Indication: Opportunistic infection prophylaxis
  6. PROGRAF [Suspect]
     Active Substance: TACROLIMUS
     Dosage: 1 CAPSULE AT 8 A.M. AND 1 CAPSULE AT 8 P.M.?DAILY DOSE: 2 DOSAGE FORM
  7. CALCIUM PHOSPHATE, DIBASIC, ANHYDROUS\MAGNESIUM GLYCEROPHOSPHATE\PHOSP [Suspect]
     Active Substance: CALCIUM PHOSPHATE, DIBASIC, ANHYDROUS\MAGNESIUM GLYCEROPHOSPHATE\PHOSPHORIC ACID\SODIUM PHOSPHATE, D
     Dosage: 75 DROPS MORNING, NOON AND EVENING?DAILY DOSE: 225 DROP
  8. FOLIC ACID [Suspect]
     Active Substance: FOLIC ACID
     Dosage: 1 TABLET MORNING?DAILY DOSE: 1 DOSAGE FORM
  9. PANTOPRAZOLE [Suspect]
     Active Substance: PANTOPRAZOLE
     Dosage: 1 TABLET EVENING?DAILY DOSE: 1 DOSAGE FORM
  10. LERCANIDIPINE [Suspect]
     Active Substance: LERCANIDIPINE
     Dates: start: 202312
  11. BIMATOPROST\TIMOLOL [Suspect]
     Active Substance: BIMATOPROST\TIMOLOL
     Dates: start: 20240228
  12. DORZOLAMIDE HYDROCHLORIDE\TIMOLOL MALEATE [Suspect]
     Active Substance: DORZOLAMIDE HYDROCHLORIDE\TIMOLOL MALEATE
     Dates: start: 20240626
  13. COTRIMOXAZOLE [Suspect]
     Active Substance: SULFAMETHOXAZOLE\TRIMETHOPRIM
     Dosage: 3X/WEEK
  14. BISOPROLOL [Suspect]
     Active Substance: BISOPROLOL

REACTIONS (2)
  - Agranulocytosis [Recovered/Resolved]
  - Respiratory syncytial virus infection [Unknown]

NARRATIVE: CASE EVENT DATE: 20241202
